FAERS Safety Report 21714247 (Version 3)
Quarter: 2022Q4

REPORT INFORMATION
  Report Type: Spontaneous
  Country: JP (occurrence: JP)
  Receive Date: 20221212
  Receipt Date: 20221221
  Transmission Date: 20230113
  Serious: Yes (Other)
  Sender: FDA-Public Use
  Company Number: JP-PFIZER INC-202201348278

PATIENT
  Age: 30 Year
  Sex: Female

DRUGS (13)
  1. INFLIXIMAB [Suspect]
     Active Substance: INFLIXIMAB
     Indication: Acute generalised exanthematous pustulosis
     Dosage: 300 MG/BODY
  2. INFLIXIMAB [Suspect]
     Active Substance: INFLIXIMAB
     Indication: Pustular psoriasis
  3. PREDNISOLONE [Suspect]
     Active Substance: PREDNISOLONE
     Indication: Systemic lupus erythematosus
     Dosage: 30 MG, DAILY
  4. PREDNISOLONE [Suspect]
     Active Substance: PREDNISOLONE
     Dosage: 10 MG, DAILY
  5. PREDNISOLONE [Suspect]
     Active Substance: PREDNISOLONE
     Dosage: 20 MG, DAILY
  6. PREDNISOLONE [Suspect]
     Active Substance: PREDNISOLONE
     Dosage: 30 MG, DAILY
  7. PREDNISOLONE [Suspect]
     Active Substance: PREDNISOLONE
     Dosage: 20 MG, DAILY
  8. TACROLIMUS [Suspect]
     Active Substance: TACROLIMUS
     Dosage: 3 MG, DAILY
  9. TACROLIMUS [Suspect]
     Active Substance: TACROLIMUS
     Dosage: 3 MG, DAILY
  10. HYDROXYCHLOROQUINE [Suspect]
     Active Substance: HYDROXYCHLOROQUINE
     Indication: Thrombocytopenia
     Dosage: 300 MG, DAILY
  11. HYDROXYCHLOROQUINE [Suspect]
     Active Substance: HYDROXYCHLOROQUINE
     Indication: Systemic lupus erythematosus
  12. VANCOMYCIN [Suspect]
     Active Substance: VANCOMYCIN
     Indication: Infectious pleural effusion
     Dosage: UNK
  13. CEFEPIME [Suspect]
     Active Substance: CEFEPIME HYDROCHLORIDE
     Indication: Infectious pleural effusion
     Dosage: UNK

REACTIONS (5)
  - Exposure during pregnancy [Unknown]
  - Infectious pleural effusion [Unknown]
  - Skin infection [Unknown]
  - Decreased immune responsiveness [Unknown]
  - Off label use [Unknown]
